FAERS Safety Report 10513832 (Version 1)
Quarter: 2014Q4

REPORT INFORMATION
  Report Type: Spontaneous
  Country: HR (occurrence: HR)
  Receive Date: 20141013
  Receipt Date: 20141013
  Transmission Date: 20150528
  Serious: Yes (Hospitalization)
  Sender: FDA-Public Use
  Company Number: HR-TEVA-513652ISR

PATIENT
  Age: 58 Year
  Sex: Female
  Weight: 69 kg

DRUGS (3)
  1. HOLOXAN [Suspect]
     Active Substance: IFOSFAMIDE
     Indication: NEOPLASM MALIGNANT
     Route: 041
     Dates: start: 20140103, end: 20140105
  2. DOXORUBICIN PLIVA [Suspect]
     Active Substance: DOXORUBICIN
     Indication: NEOPLASM MALIGNANT
     Dosage: 26 MG/M2 DAILY;
     Route: 041
     Dates: start: 20140103, end: 20140106
  3. DACARBAZINE PLIVA [Suspect]
     Active Substance: DACARBAZINE
     Indication: NEOPLASM MALIGNANT
     Dosage: 440 MILLIGRAM DAILY;
     Route: 041
     Dates: start: 20140103, end: 20140106

REACTIONS (2)
  - Neutropenia [Recovered/Resolved]
  - Gingivitis [Recovered/Resolved]

NARRATIVE: CASE EVENT DATE: 20140116
